FAERS Safety Report 6013971-7 (Version None)
Quarter: 2008Q4

REPORT INFORMATION
  Report Type: 
  Country: None (occurrence: None)
  Receive Date: 20081219
  Receipt Date: 20081209
  Transmission Date: 20090506
  Serious: Yes (Other)
  Sender: FDA-Public Use
  Company Number: US-PFIZER INC-2008151669

PATIENT
  Sex: Male

DRUGS (1)
  1. GEODON [Suspect]
     Dates: start: 20081201

REACTIONS (2)
  - AGGRESSION [None]
  - MOOD ALTERED [None]
